FAERS Safety Report 8722011 (Version 2)
Quarter: 2012Q4

REPORT INFORMATION
  Report Type: 
  Country: US (occurrence: US)
  Receive Date: 20120814
  Receipt Date: 20121128
  Transmission Date: 20130627
  Serious: Yes (Hospitalization)
  Sender: FDA-Public Use
  Company Number: US-BAYER-2012-081271

PATIENT
  Age: 22 Year
  Sex: Female
  Weight: 95.24 kg

DRUGS (4)
  1. YAZ [Suspect]
     Indication: BIRTH CONTROL
     Dosage: UNK
     Dates: start: 200808, end: 201005
  2. YAZ [Suspect]
     Indication: BIRTH CONTROL
     Dosage: UNK
     Dates: start: 200909, end: 201005
  3. METFORMIN [Concomitant]
  4. ALDACTONE [POTASSIUM CANRENOATE] [Concomitant]

REACTIONS (10)
  - Gallbladder disorder [None]
  - Injury [None]
  - Pain [None]
  - General physical health deterioration [None]
  - Abdominal pain [None]
  - Malaise [None]
  - Cholecystitis chronic [None]
  - Emotional distress [None]
  - Anxiety [None]
  - Pain [None]
